FAERS Safety Report 8431929-5 (Version None)
Quarter: 2012Q2

REPORT INFORMATION
  Report Type: 
  Country: None (occurrence: None)
  Receive Date: 20120613
  Receipt Date: 20111209
  Transmission Date: 20120825
  Serious: No
  Sender: FDA-Public Use
  Company Number: US-ASTRAZENECA-2009UW12682

PATIENT
  Age: 60 Year
  Sex: Male
  Weight: 79.4 kg

DRUGS (3)
  1. RHINOCORT [Suspect]
     Indication: NASAL DISORDER
     Dosage: ONE PUMP IN EACH NOSE, ONE SPRAY PER NOSTRIL ONCE A DAY AS NEEDED
     Route: 045
  2. ALLEGRA [Concomitant]
  3. RHINOCORT [Suspect]
     Indication: RHINITIS ALLERGIC
     Dosage: ONE PUMP IN EACH NOSE, ONE SPRAY PER NOSTRIL ONCE A DAY AS NEEDED
     Route: 045

REACTIONS (3)
  - EYE PRURITUS [None]
  - INSOMNIA [None]
  - ADVERSE DRUG REACTION [None]
